FAERS Safety Report 9029146 (Version 1)
Quarter: 2013Q1

REPORT INFORMATION
  Report Type: Report from Study
  Country: PR (occurrence: PR)
  Receive Date: 20130124
  Receipt Date: 20130124
  Transmission Date: 20140127
  Serious: Yes (Other)
  Sender: FDA-Public Use
  Company Number: PR-BAYER-2013-007102

PATIENT
  Age: 41 Year
  Sex: Female

DRUGS (5)
  1. BETASERON [Suspect]
     Indication: MULTIPLE SCLEROSIS
     Dosage: 6 MIU, QOD
     Route: 058
     Dates: start: 20121219
  2. KEPRA [Concomitant]
     Indication: CONVULSION
     Dosage: 750 MG, BID
  3. TOPAMAX [Concomitant]
     Indication: CONVULSION
     Dosage: 100 MG, BID
  4. FIORICET [Concomitant]
     Indication: HEADACHE
     Dosage: 1 TABLET EVERY 4 OR 6 HOURS
     Route: 048
  5. KLONOPIN [Concomitant]
     Indication: ANXIETY
     Dosage: 0.5 MG, QD

REACTIONS (6)
  - Injection site rash [Not Recovered/Not Resolved]
  - Injection site pain [Not Recovered/Not Resolved]
  - Injection site pruritus [Not Recovered/Not Resolved]
  - Blindness transient [Recovered/Resolved]
  - Fall [Recovered/Resolved]
  - Convulsion [Recovered/Resolved]
